FAERS Safety Report 12753098 (Version 3)
Quarter: 2017Q2

REPORT INFORMATION
  Report Type: Spontaneous
  Country: IT (occurrence: IT)
  Receive Date: 20160916
  Receipt Date: 20170504
  Transmission Date: 20170830
  Serious: Yes (Hospitalization)
  Sender: FDA-Public Use
  Company Number: IT-TEVA-691165ACC

PATIENT
  Age: 55 Year
  Sex: Female

DRUGS (7)
  1. LETROZOLO 2.5 MG [Suspect]
     Active Substance: LETROZOLE
     Indication: CANCER HORMONAL THERAPY
  2. LETROZOLO 2.5 MG [Suspect]
     Active Substance: LETROZOLE
     Indication: INVASIVE DUCTAL BREAST CARCINOMA
  3. ANASTROZOLO [Suspect]
     Active Substance: ANASTROZOLE
     Indication: BREAST CANCER
     Route: 065
     Dates: start: 20130301
  4. ANASTROZOLO [Suspect]
     Active Substance: ANASTROZOLE
     Indication: INVASIVE DUCTAL BREAST CARCINOMA
  5. LETROZOLO 2.5 MG [Suspect]
     Active Substance: LETROZOLE
     Indication: BREAST CANCER
     Dosage: 2.5 MILLIGRAM DAILY;
     Route: 048
     Dates: start: 20120701, end: 20121001
  6. AZATHIOPRINE. [Concomitant]
     Active Substance: AZATHIOPRINE
     Route: 065
  7. PREDNISONE. [Concomitant]
     Active Substance: PREDNISONE

REACTIONS (7)
  - Asthenia [Unknown]
  - Antisynthetase syndrome [Recovering/Resolving]
  - Hypocapnia [Unknown]
  - Dyspnoea [Unknown]
  - Immune-mediated necrotising myopathy [Unknown]
  - Interstitial lung disease [Unknown]
  - Myositis [Recovered/Resolved]
